FAERS Safety Report 8515933-4 (Version None)
Quarter: 2012Q3

REPORT INFORMATION
  Report Type: 
  Country: None (occurrence: None)
  Receive Date: 20120717
  Receipt Date: 20120710
  Transmission Date: 20120928
  Serious: No
  Sender: FDA-Public Use
  Company Number: JP-JNJFOC-20120412399

PATIENT
  Age: 51 Year
  Sex: Male

DRUGS (2)
  1. USTEKINUMAB [Suspect]
     Indication: PSORIASIS
     Route: 058
     Dates: start: 20120326
  2. ISONIAZID [Suspect]
     Indication: MYCOBACTERIUM TUBERCULOSIS COMPLEX TEST POSITIVE

REACTIONS (1)
  - HEPATIC FUNCTION ABNORMAL [None]
